FAERS Safety Report 19783393 (Version 3)
Quarter: 2022Q3

REPORT INFORMATION
  Report Type: Report from Study
  Country: US (occurrence: None)
  Receive Date: 20210902
  Receipt Date: 20220805
  Transmission Date: 20221027
  Serious: Yes (Hospitalization)
  Sender: FDA-Public Use
  Company Number: US-ROCHE-2900423

PATIENT
  Age: 63 Year
  Sex: Male
  Weight: 116.7 kg

DRUGS (1)
  1. PIRFENIDONE [Suspect]
     Active Substance: PIRFENIDONE
     Indication: Non-small cell lung cancer
     Route: 048

REACTIONS (1)
  - Anaemia [Recovered/Resolved with Sequelae]

NARRATIVE: CASE EVENT DATE: 20180222
